FAERS Safety Report 12931453 (Version 3)
Quarter: 2020Q2

REPORT INFORMATION
  Report Type: Report from Study
  Country: US (occurrence: US)
  Receive Date: 20161110
  Receipt Date: 20200604
  Transmission Date: 20200713
  Serious: Yes (Death, Hospitalization)
  Sender: FDA-Public Use
  Company Number: US-ACTELION-A-US2016-134886

PATIENT
  Age: 76 Year
  Sex: Female

DRUGS (3)
  1. OPSUMIT [Suspect]
     Active Substance: MACITENTAN
     Indication: PULMONARY HYPERTENSION
     Dosage: 10 MG, UNK
     Route: 048
     Dates: start: 20150408, end: 20161023
  2. UPTRAVI [Suspect]
     Active Substance: SELEXIPAG
     Indication: PULMONARY HYPERTENSION
     Dosage: 600 MCG, BID
     Route: 048
     Dates: start: 20160211
  3. UPTRAVI [Suspect]
     Active Substance: SELEXIPAG
     Dosage: 400 MCG, UNK
     Route: 048
     Dates: start: 20160205, end: 20161023

REACTIONS (18)
  - Respiratory failure [Fatal]
  - Anxiety [Fatal]
  - Raynaud^s phenomenon [Unknown]
  - Hypocalcaemia [Fatal]
  - Brain injury [Fatal]
  - Pupil fixed [Fatal]
  - Rib fracture [Not Recovered/Not Resolved]
  - Dizziness [Fatal]
  - Lactic acidosis [Fatal]
  - Circulatory collapse [Unknown]
  - Troponin increased [Unknown]
  - Dyspnoea [Fatal]
  - Syncope [Fatal]
  - Hypokalaemia [Fatal]
  - Cardio-respiratory arrest [Unknown]
  - Hypotension [Fatal]
  - Unresponsive to stimuli [Fatal]
  - Pulseless electrical activity [Unknown]

NARRATIVE: CASE EVENT DATE: 20161022
